FAERS Safety Report 5726785-X (Version None)
Quarter: 2008Q2

REPORT INFORMATION
  Report Type: 
  Country: None (occurrence: None)
  Receive Date: 20080502
  Receipt Date: 20080423
  Transmission Date: 20081010
  Serious: Yes (Hospitalization)
  Sender: FDA-Public Use
  Company Number: JP-PFIZER INC-2008024918

PATIENT
  Sex: Female
  Weight: 48.6 kg

DRUGS (4)
  1. AZULFIDINE EN-TABS [Suspect]
     Indication: RHEUMATOID ARTHRITIS
     Dates: start: 20080206, end: 20080324
  2. FAMOTIDINE [Suspect]
     Route: 048
     Dates: start: 20080121, end: 20080304
  3. ALENDRONATE SODIUM [Suspect]
     Route: 048
     Dates: start: 20080129, end: 20080304
  4. PREDNISOLONE [Concomitant]
     Route: 048
     Dates: start: 20080121, end: 20080304

REACTIONS (1)
  - NEUTROPHIL COUNT DECREASED [None]
